FAERS Safety Report 5933307-7 (Version None)
Quarter: 2008Q4

REPORT INFORMATION
  Report Type: 
  Country: None (occurrence: None)
  Receive Date: 20081028
  Receipt Date: 20081016
  Transmission Date: 20090506
  Serious: Yes (Hospitalization, Other)
  Sender: FDA-Public Use
  Company Number: US-PFIZER INC-2008085042

PATIENT
  Age: 55 Year
  Sex: Male
  Weight: 73 kg

DRUGS (16)
  1. MARAVIROC [Suspect]
     Indication: HIV TEST POSITIVE
     Route: 048
     Dates: start: 20080916
  2. DARUNAVIR [Suspect]
     Route: 048
     Dates: start: 20080916
  3. ETRAVIRINE [Suspect]
     Route: 048
     Dates: start: 20080916
  4. RALTEGRAVIR [Suspect]
     Route: 048
     Dates: start: 20080916
  5. NORVIR [Suspect]
     Route: 048
     Dates: start: 20080916
  6. ATENOLOL [Concomitant]
     Dates: start: 20050316
  7. AZITHROMYCIN [Concomitant]
     Dates: start: 20080104
  8. FLUCONAZOLE [Concomitant]
     Dates: start: 20080116
  9. GABAPENTIN [Concomitant]
     Dates: start: 20070504
  10. HYDROXYZINE [Concomitant]
     Dates: start: 20080106
  11. RANITIDINE [Concomitant]
     Dates: start: 20060315
  12. ZOLPIDEM [Concomitant]
     Dates: start: 20070122
  13. MEPRON [Concomitant]
     Dates: start: 20080313
  14. GEMFIBROZIL [Concomitant]
     Dates: start: 20020909
  15. DAPSONE [Concomitant]
     Dates: start: 19961127
  16. PENTAMIDINE [Concomitant]
     Dates: start: 20061127

REACTIONS (5)
  - BLOOD CREATININE INCREASED [None]
  - BLOOD UREA INCREASED [None]
  - DIARRHOEA [None]
  - EPISTAXIS [None]
  - GLOMERULAR FILTRATION RATE DECREASED [None]
